FAERS Safety Report 9052685 (Version 3)
Quarter: 2013Q2

REPORT INFORMATION
  Report Type: Spontaneous
  Country: IT (occurrence: IT)
  Receive Date: 20130207
  Receipt Date: 20130618
  Transmission Date: 20140414
  Serious: Yes (Hospitalization)
  Sender: FDA-Public Use
  Company Number: IT-BAYER-2013-015463

PATIENT
  Age: 49 Year
  Sex: Female

DRUGS (3)
  1. KLAIRA [Suspect]
     Indication: ENDOMETRIAL DISORDER
     Dosage: DAILY DOSE 1 DF
     Route: 048
     Dates: start: 20090701, end: 20121201
  2. KLAIRA [Suspect]
     Indication: VAGINAL HAEMORRHAGE
  3. KLAIRA [Suspect]
     Indication: ANAEMIA

REACTIONS (1)
  - Invasive ductal breast carcinoma [Unknown]
